FAERS Safety Report 23470447 (Version 1)
Quarter: 2024Q1

REPORT INFORMATION
  Report Type: Spontaneous
  Country: GB (occurrence: GB)
  Receive Date: 20240202
  Receipt Date: 20240202
  Transmission Date: 20240410
  Serious: Yes (Hospitalization, Other)
  Sender: FDA-Public Use
  Company Number: GB-PFIZER INC-202400030864

PATIENT

DRUGS (2)
  1. RITUXIMAB [Suspect]
     Active Substance: RITUXIMAB
  2. VENETOCLAX [Suspect]
     Active Substance: VENETOCLAX
     Route: 050
     Dates: end: 202009

REACTIONS (5)
  - Pericarditis [Unknown]
  - Pulmonary embolism [Unknown]
  - Pleural effusion [Unknown]
  - Neutropenia [Unknown]
  - Chest pain [Unknown]

NARRATIVE: CASE EVENT DATE: 20200101
